FAERS Safety Report 17661096 (Version 1)
Quarter: 2020Q2

REPORT INFORMATION
  Report Type: Spontaneous
  Country: US (occurrence: US)
  Receive Date: 20200410
  Receipt Date: 20200410
  Transmission Date: 20200713
  Serious: No
  Sender: FDA-Public Use
  Company Number: None

PATIENT
  Age: 77 Year
  Sex: Female

DRUGS (1)
  1. CAPECITABINE TAB 500MG [Suspect]
     Active Substance: CAPECITABINE
     Dosage: 500MG AM AND 1000M BID ORAL?
     Route: 048
     Dates: start: 201912, end: 202004

REACTIONS (2)
  - Asthenia [None]
  - Fall [None]

NARRATIVE: CASE EVENT DATE: 20200327
